FAERS Safety Report 5158885-X (Version None)
Quarter: 2006Q4

REPORT INFORMATION
  Report Type: 
  Country: None (occurrence: None)
  Receive Date: 20061115
  Receipt Date: 20061102
  Transmission Date: 20070319
  Serious: Yes (Hospitalization)
  Sender: FDA-Public Use
  Company Number: B0413189A

PATIENT
  Age: 42 Year
  Sex: Male
  Weight: 69.8539 kg

DRUGS (9)
  1. ZOVIRAX [Suspect]
     Indication: MENINGOENCEPHALITIS HERPETIC
     Dosage: 15 MG/KG/THREE TIMES PER DAY/INTRA
     Route: 042
     Dates: start: 20060109, end: 20060129
  2. VALPROATE SODIUM [Suspect]
     Indication: CONVULSION PROPHYLAXIS
     Dosage: 500 MG/THREE TIMES PER DAY/ORAL
     Route: 048
     Dates: start: 20060109
  3. CLAFORAN [Concomitant]
  4. FOSFOMYCIN [Concomitant]
  5. METRONIDAZOLE [Concomitant]
  6. ACETAMINOPHEN [Concomitant]
  7. SPASFON [Concomitant]
  8. LOPERAMIDE HYDROCHLORIDE [Concomitant]
  9. MANNITOL [Concomitant]

REACTIONS (6)
  - BRAIN OEDEMA [None]
  - CONFUSIONAL STATE [None]
  - NECROSIS [None]
  - NEUROTOXICITY [None]
  - OVERDOSE [None]
  - RENAL FAILURE ACUTE [None]
